FAERS Safety Report 25728987 (Version 2)
Quarter: 2025Q3

REPORT INFORMATION
  Report Type: Report from Study
  Country: CA (occurrence: CA)
  Receive Date: 20250826
  Receipt Date: 20250912
  Transmission Date: 20251020
  Serious: Yes (Other)
  Sender: ALEXION PHARMACEUTICALS
  Company Number: CA-AstraZeneca-CH-00936200A

PATIENT
  Sex: Female

DRUGS (5)
  1. OSIMERTINIB [Suspect]
     Active Substance: OSIMERTINIB
     Indication: Non-small cell lung cancer metastatic
     Dates: start: 20201007, end: 20250822
  2. NEXIUM [Concomitant]
     Active Substance: ESOMEPRAZOLE MAGNESIUM
     Route: 065
  3. SYMBICORT [Concomitant]
     Active Substance: BUDESONIDE\FORMOTEROL FUMARATE DIHYDRATE
     Route: 065
  4. RYBREVANT [Concomitant]
     Active Substance: AMIVANTAMAB-VMJW
     Route: 065
  5. LAZCLUZE [Concomitant]
     Active Substance: LAZERTINIB
     Route: 065

REACTIONS (1)
  - Malignant neoplasm progression [Unknown]
